FAERS Safety Report 24838981 (Version 2)
Quarter: 2025Q1

REPORT INFORMATION
  Report Type: Spontaneous
  Country: PL (occurrence: PL)
  Receive Date: 20250114
  Receipt Date: 20250120
  Transmission Date: 20250409
  Serious: Yes (Other)
  Sender: JOHNSON AND JOHNSON
  Company Number: PL-JNJFOC-20241285076

PATIENT
  Age: 52 Year

DRUGS (1)
  1. REMICADE [Suspect]
     Active Substance: INFLIXIMAB
     Indication: Crohn^s disease
     Route: 041
     Dates: start: 2020

REACTIONS (5)
  - Anal abscess [Unknown]
  - Abdominal abscess [Unknown]
  - Neuroendocrine tumour [Unknown]
  - Hepatic lesion [Unknown]
  - Loss of therapeutic response [Unknown]
